FAERS Safety Report 6789032-6 (Version None)
Quarter: 2010Q2

REPORT INFORMATION
  Report Type: 
  Country: None (occurrence: None)
  Receive Date: 20100623
  Receipt Date: 20080716
  Transmission Date: 20101027
  Serious: Yes (Life-Threatening, Hospitalization, Other)
  Sender: FDA-Public Use
  Company Number: US-PFIZER INC-2008053118

PATIENT
  Sex: Female
  Weight: 92.5 kg

DRUGS (18)
  1. DEPO-PROVERA SUSPENSION/INJ [Suspect]
     Indication: OFF LABEL USE
     Dosage: 1ST INJECTION
     Route: 030
     Dates: start: 20020101, end: 20020101
  2. DEPO-PROVERA SUSPENSION/INJ [Suspect]
     Indication: MENSTRUAL DISCOMFORT
     Dosage: LAST INJECTION
     Route: 030
     Dates: start: 20080301, end: 20080301
  3. DEPO-PROVERA SUSPENSION/INJ [Suspect]
     Indication: CONTRACEPTION
  4. NOVOLOG [Concomitant]
  5. ACETYLSALICYLIC ACID [Concomitant]
  6. AVANDIA [Concomitant]
  7. CELEXA [Concomitant]
  8. COGENTIN [Concomitant]
  9. DEPAKOTE [Concomitant]
  10. DETROL [Concomitant]
  11. DIOVANE [Concomitant]
  12. GLUCOPHAGE [Concomitant]
  13. INSULIN [Concomitant]
     Dosage: 75 UNITS
  14. ATORVASTATIN [Concomitant]
  15. MULTI-VITAMINS [Concomitant]
  16. OCEAN [Concomitant]
  17. PROLIXIN [Concomitant]
  18. RISPERDAL [Concomitant]

REACTIONS (1)
  - PULMONARY EMBOLISM [None]
